FAERS Safety Report 9305038 (Version 1)
Quarter: 2013Q2

REPORT INFORMATION
  Report Type: Spontaneous
  Country: DE (occurrence: DE)
  Receive Date: 20130523
  Receipt Date: 20130523
  Transmission Date: 20140414
  Serious: Yes (Other)
  Sender: FDA-Public Use
  Company Number: DE-009507513-1305DEU009733

PATIENT
  Age: 24 Year
  Sex: Male
  Weight: 66 kg

DRUGS (1)
  1. PROPECIA 1MG FILMTABLETTEN [Suspect]
     Indication: ANDROGENETIC ALOPECIA
     Dosage: 1 MG, QD
     Route: 048
     Dates: end: 20121204

REACTIONS (1)
  - Hepatic enzyme increased [Recovered/Resolved]
